FAERS Safety Report 21820101 (Version 1)
Quarter: 2023Q1

REPORT INFORMATION
  Report Type: Spontaneous
  Country: US (occurrence: US)
  Receive Date: 20230105
  Receipt Date: 20230105
  Transmission Date: 20230418
  Serious: No
  Sender: FDA-Public Use
  Company Number: US-SA-SAC20230103000883

PATIENT
  Age: 64 Year
  Sex: Male

DRUGS (1)
  1. DUPIXENT [Suspect]
     Active Substance: DUPILUMAB
     Dosage: 300 MG / 2 ML EVERY 14 DAYS
     Route: 058

REACTIONS (4)
  - Seasonal allergy [Unknown]
  - Skin exfoliation [Not Recovered/Not Resolved]
  - Therapeutic response shortened [Unknown]
  - Dry eye [Recovered/Resolved]
